FAERS Safety Report 10151304 (Version 1)
Quarter: 2014Q2

REPORT INFORMATION
  Report Type: Spontaneous
  Country: PL (occurrence: PL)
  Receive Date: 20140504
  Receipt Date: 20140504
  Transmission Date: 20141212
  Serious: Yes (Other)
  Sender: FDA-Public Use
  Company Number: 2014SP002348

PATIENT
  Age: 31 Year
  Sex: Female
  Weight: 75 kg

DRUGS (2)
  1. CISPLATIN [Suspect]
     Route: 042
     Dates: start: 20130729, end: 20131002
  2. ETOPOSIDE [Suspect]
     Route: 042
     Dates: start: 20130729, end: 20131002

REACTIONS (2)
  - Pulmonary embolism [Unknown]
  - Ejection fraction decreased [Unknown]
